FAERS Safety Report 14555268 (Version 1)
Quarter: 2018Q1

REPORT INFORMATION
  Report Type: Spontaneous
  Country: US (occurrence: US)
  Receive Date: 20180219
  Receipt Date: 20180219
  Transmission Date: 20180509
  Serious: Yes (Life-Threatening, Hospitalization, Disabling, Other)
  Sender: FDA-Public Use
  Company Number: None

PATIENT
  Age: 50 Year
  Sex: Female
  Weight: 87.75 kg

DRUGS (12)
  1. UNITHROID [Concomitant]
     Active Substance: LEVOTHYROXINE SODIUM
  2. ATORVASTATIN [Concomitant]
     Active Substance: ATORVASTATIN
  3. METFORMIN [Concomitant]
     Active Substance: METFORMIN HYDROCHLORIDE
  4. TRIFLUOPERAZINE [Concomitant]
     Active Substance: TRIFLUOPERAZINE\TRIFLUOPERAZINE HYDROCHLORIDE
  5. RANITIDINE. [Concomitant]
     Active Substance: RANITIDINE
  6. QUETIAPINE FUMARATE. [Concomitant]
     Active Substance: QUETIAPINE FUMARATE
  7. TRAZODONE [Concomitant]
     Active Substance: TRAZODONE HYDROCHLORIDE
  8. LORAZEPAM. [Concomitant]
     Active Substance: LORAZEPAM
  9. DULOXETINE. [Concomitant]
     Active Substance: DULOXETINE
  10. THYROID COMPLEX VITAMIN SUPPLEMENTS [Concomitant]
  11. KENALOG [Suspect]
     Active Substance: TRIAMCINOLONE ACETONIDE
  12. GABAPENTIN. [Concomitant]
     Active Substance: GABAPENTIN

REACTIONS (11)
  - Wound drainage [None]
  - Injection related reaction [None]
  - Extradural haematoma [None]
  - Spinal cord compression [None]
  - Post procedural infection [None]
  - Pain [None]
  - Swelling [None]
  - Paraesthesia [None]
  - Paralysis [None]
  - Neurogenic bladder [None]
  - Staphylococcal infection [None]

NARRATIVE: CASE EVENT DATE: 20160105
